FAERS Safety Report 14270549 (Version 2)
Quarter: 2021Q2

REPORT INFORMATION
  Report Type: Spontaneous
  Country: SE (occurrence: SE)
  Receive Date: 20171211
  Receipt Date: 20210405
  Transmission Date: 20210716
  Serious: Yes (Other)
  Sender: FDA-Public Use
  Company Number: SE-OTSUKA-2015_006147

PATIENT
  Age: 16 Year
  Sex: Female

DRUGS (1)
  1. ABILIFY [Suspect]
     Active Substance: ARIPIPRAZOLE
     Indication: MOOD SWINGS
     Dosage: 0.5 MG, QD
     Route: 048
     Dates: end: 20150604

REACTIONS (5)
  - Product use in unapproved indication [Unknown]
  - Epilepsy [Recovered/Resolved with Sequelae]
  - Nausea [Unknown]
  - Vomiting [Recovered/Resolved]
  - Haematemesis [Recovered/Resolved with Sequelae]

NARRATIVE: CASE EVENT DATE: 201502
